FAERS Safety Report 25184488 (Version 1)
Quarter: 2025Q2

REPORT INFORMATION
  Report Type: Spontaneous
  Country: US (occurrence: None)
  Receive Date: 20250409
  Receipt Date: 20250409
  Transmission Date: 20250716
  Serious: No
  Sender: FDA-CTU
  Company Number: None

PATIENT
  Age: 79 Year
  Sex: Male

DRUGS (1)
  1. TIRZEPATIDE [Suspect]
     Active Substance: TIRZEPATIDE

REACTIONS (3)
  - Gastrointestinal haemorrhage [None]
  - Rash [None]
  - Vomiting [None]

NARRATIVE: CASE EVENT DATE: 20250131
